FAERS Safety Report 8532351-3 (Version None)
Quarter: 2012Q3

REPORT INFORMATION
  Report Type: 
  Country: None (occurrence: None)
  Receive Date: 20120724
  Receipt Date: 20120716
  Transmission Date: 20120928
  Serious: No
  Sender: FDA-Public Use
  Company Number: US-BIOGENIDEC-2012BI025813

PATIENT
  Age: 49 Year
  Sex: Female

DRUGS (4)
  1. REBIF [Concomitant]
     Indication: MULTIPLE SCLEROSIS
     Dates: start: 20120101
  2. TYSABRI [Suspect]
     Route: 042
     Dates: end: 20120101
  3. COPAXONE [Concomitant]
     Indication: MULTIPLE SCLEROSIS
     Dates: start: 20120301
  4. TYSABRI [Suspect]
     Indication: MULTIPLE SCLEROSIS
     Route: 042
     Dates: start: 20080911, end: 20111208

REACTIONS (1)
  - DEPRESSION [None]
